FAERS Safety Report 6408520-5 (Version None)
Quarter: 2009Q4

REPORT INFORMATION
  Report Type: 
  Country: None (occurrence: None)
  Receive Date: 20091019
  Receipt Date: 20090930
  Transmission Date: 20100525
  Serious: Yes (Hospitalization)
  Sender: FDA-Public Use
  Company Number: WAES 0909USA05022

PATIENT
  Age: 43 Year
  Sex: Female

DRUGS (2)
  1. DECADRON [Suspect]
     Dosage: PO
     Route: 048
     Dates: start: 20081229
  2. POWD STUDY DRUG (UNSPECIFIED) UNK [Suspect]
     Indication: SPINAL FUSION SURGERY
     Dosage: 0.6 MG/1X/
     Dates: start: 20081229, end: 20081229

REACTIONS (1)
  - LEUKOCYTOSIS [None]
